FAERS Safety Report 22084978 (Version 3)
Quarter: 2023Q4

REPORT INFORMATION
  Report Type: Spontaneous
  Country: US (occurrence: US)
  Receive Date: 20230310
  Receipt Date: 20231115
  Transmission Date: 20240110
  Serious: No
  Sender: FDA-Public Use
  Company Number: US-PFIZER INC-PV202300045902

PATIENT
  Age: 64 Year
  Sex: Female

DRUGS (3)
  1. BRAFTOVI [Suspect]
     Active Substance: ENCORAFENIB
     Indication: Pancreatic carcinoma metastatic
     Dosage: 300 MG (I WAS TAKING 4 CAPSULES)
  2. BRAFTOVI [Suspect]
     Active Substance: ENCORAFENIB
     Dosage: 75 MG, 2X/DAY (I TAKE 2 - 1 IN THE MORNING AND 1 AT NIGHT)
  3. BRAFTOVI [Suspect]
     Active Substance: ENCORAFENIB
     Dosage: 300 MG, DAILY
     Route: 048

REACTIONS (3)
  - Pain [Unknown]
  - Intentional product misuse [Unknown]
  - Off label use [Unknown]
